FAERS Safety Report 15439697 (Version 1)
Quarter: 2018Q3

REPORT INFORMATION
  Report Type: Spontaneous
  Country: ES (occurrence: ES)
  Receive Date: 20180928
  Receipt Date: 20180928
  Transmission Date: 20181010
  Serious: Yes (Other)
  Sender: FDA-Public Use
  Company Number: ES-GLAXOSMITHKLINE-ES2018175776

PATIENT
  Age: 60 Year
  Sex: Male

DRUGS (2)
  1. RANITIDINE. [Suspect]
     Active Substance: RANITIDINE
     Indication: ABDOMINAL PAIN UPPER
     Dosage: UNK
     Route: 042
  2. HYOSCINE BUTYLBROMIDE [Concomitant]
     Active Substance: BUTYLSCOPOLAMINE
     Indication: ABDOMINAL PAIN UPPER
     Dosage: UNK
     Route: 042

REACTIONS (3)
  - Erythema [Unknown]
  - Pruritus [Unknown]
  - Type I hypersensitivity [Unknown]
